FAERS Safety Report 11138930 (Version 2)
Quarter: 2017Q4

REPORT INFORMATION
  Report Type: Spontaneous
  Country: US (occurrence: US)
  Receive Date: 20150527
  Receipt Date: 20171128
  Transmission Date: 20180320
  Serious: Yes (Other)
  Sender: FDA-Public Use
  Company Number: US-SUN PHARMACEUTICAL INDUSTRIES LTD-2015US-97468

PATIENT
  Age: 48 Year
  Sex: Female

DRUGS (1)
  1. QUETIAPINE. [Suspect]
     Active Substance: QUETIAPINE
     Indication: PRODUCT USED FOR UNKNOWN INDICATION
     Dosage: TITRATED UP TO 100 MG BEFORE BEDTIME FOR 3 DAYS
     Route: 065

REACTIONS (1)
  - Sleep-related eating disorder [Recovered/Resolved]
